FAERS Safety Report 5563832-2 (Version None)
Quarter: 2007Q4

REPORT INFORMATION
  Report Type: 
  Country: None (occurrence: None)
  Receive Date: 20071217
  Receipt Date: 20070904
  Transmission Date: 20080405
  Serious: No
  Sender: FDA-Public Use
  Company Number: US-ASTRAZENECA-2007UW20813

PATIENT
  Age: 77 Year
  Sex: Female
  Weight: 62.6 kg

DRUGS (5)
  1. CRESTOR [Suspect]
     Indication: BLOOD CHOLESTEROL INCREASED
     Route: 048
  2. CRESTOR [Suspect]
     Route: 048
     Dates: end: 20070801
  3. NORVASC [Concomitant]
  4. VITAMINS [Concomitant]
  5. ASPIRIN [Concomitant]

REACTIONS (1)
  - ASTHENOPIA [None]
